FAERS Safety Report 7515441-3 (Version None)
Quarter: 2011Q2

REPORT INFORMATION
  Report Type: 
  Country: None (occurrence: None)
  Receive Date: 20110601
  Receipt Date: 20110525
  Transmission Date: 20111010
  Serious: Yes (Other)
  Sender: FDA-Public Use
  Company Number: IL-AMGEN-USASP2011027612

PATIENT

DRUGS (2)
  1. NEULASTA [Suspect]
     Indication: CHEMOTHERAPY
  2. CHEMOTHERAPEUTICS [Concomitant]

REACTIONS (2)
  - SEPSIS [None]
  - FEBRILE NEUTROPENIA [None]
